FAERS Safety Report 24980733 (Version 1)
Quarter: 2025Q1

REPORT INFORMATION
  Report Type: Spontaneous
  Country: PT (occurrence: PT)
  Receive Date: 20250218
  Receipt Date: 20250218
  Transmission Date: 20250408
  Serious: Yes (Other)
  Sender: TEVA
  Company Number: None

PATIENT
  Age: 43 Year
  Sex: Female

DRUGS (1)
  1. IBUPROFEN [Suspect]
     Active Substance: IBUPROFEN
     Indication: Headache
     Route: 048
     Dates: start: 20220411

REACTIONS (7)
  - Oropharyngeal discomfort [Recovered/Resolved]
  - Nasal pruritus [Recovered/Resolved]
  - Eye pruritus [Recovered/Resolved]
  - Pruritus [Recovered/Resolved]
  - Paraesthesia oral [Recovered/Resolved]
  - Face oedema [Recovered/Resolved]
  - Lip oedema [Recovered/Resolved]

NARRATIVE: CASE EVENT DATE: 20220411
